FAERS Safety Report 9298823 (Version 2)
Quarter: 2013Q2

REPORT INFORMATION
  Report Type: Report from Study
  Country: GB (occurrence: GB)
  Receive Date: 20130520
  Receipt Date: 20130528
  Transmission Date: 20140414
  Serious: Yes (Hospitalization)
  Sender: FDA-Public Use
  Company Number: GB-GLAXOSMITHKLINE-B0855184B

PATIENT
  Age: 73 Year
  Sex: Male
  Weight: 73 kg

DRUGS (16)
  1. OFATUMUMAB [Suspect]
     Indication: CHRONIC LYMPHOCYTIC LEUKAEMIA
     Dosage: 1000MG CYCLIC
     Route: 042
     Dates: start: 20121212
  2. BENDAMUSTINE [Suspect]
     Indication: CHRONIC LYMPHOCYTIC LEUKAEMIA
     Dosage: 125MG CYCLIC
     Route: 042
     Dates: start: 20121212
  3. ALLOPURINOL [Suspect]
     Dates: start: 20130430, end: 20130504
  4. PARACETAMOL [Concomitant]
     Dates: start: 20130430, end: 20130508
  5. CHLORPHENIRAMINE [Concomitant]
     Dates: start: 20130430, end: 20130430
  6. PREDNISOLONE [Concomitant]
     Dates: start: 20130430, end: 20130430
  7. METOCLOPRAMIDE [Concomitant]
     Indication: NAUSEA
     Dosage: 10MG AS REQUIRED
     Dates: start: 20130215, end: 20130430
  8. ACICLOVIR [Concomitant]
     Indication: PROPHYLAXIS
     Dosage: 40MG TWICE PER DAY
     Route: 048
  9. G-CSF [Concomitant]
  10. BISOPROLOL [Concomitant]
     Dosage: 1.25MG PER DAY
     Route: 048
     Dates: start: 20130215
  11. FRUSEMIDE [Concomitant]
     Dosage: 20MG PER DAY
     Route: 048
     Dates: start: 20130215
  12. AMITRIPTYLINE [Concomitant]
     Route: 048
     Dates: start: 20110615
  13. LOSARTAN [Concomitant]
     Indication: HYPERTENSION
     Dosage: 100MG PER DAY
     Route: 048
     Dates: start: 20110615
  14. LANSOPRAZOLE [Concomitant]
     Dosage: 30MG PER DAY
     Route: 048
     Dates: start: 20110615
  15. SIMVASTATIN [Concomitant]
     Indication: BLOOD CHOLESTEROL INCREASED
     Dosage: 40MG PER DAY
     Route: 048
     Dates: start: 20120415
  16. CITRAZINE [Concomitant]
     Dosage: 10MG PER DAY
     Route: 048
     Dates: start: 20130115

REACTIONS (4)
  - Hypersensitivity [Recovered/Resolved]
  - Pyrexia [Recovered/Resolved]
  - Rash maculo-papular [Recovered/Resolved]
  - Hyperuricaemia [Recovered/Resolved]
